FAERS Safety Report 10027743 (Version 1)
Quarter: 2014Q1

REPORT INFORMATION
  Report Type: Spontaneous
  Country: US (occurrence: US)
  Receive Date: 20140321
  Receipt Date: 20140321
  Transmission Date: 20141002
  Serious: No
  Sender: FDA-Public Use
  Company Number: US-009507513-1403USA000708

PATIENT
  Sex: Male

DRUGS (1)
  1. AFRIN ALL NIGHT NO DRIP [Suspect]
     Indication: PRODUCT USED FOR UNKNOWN INDICATION
     Dosage: UNK UNK, UNKNOWN
     Route: 045

REACTIONS (1)
  - Expired drug administered [Unknown]
